FAERS Safety Report 6716300-6 (Version None)
Quarter: 2010Q2

REPORT INFORMATION
  Report Type: 
  Country: None (occurrence: None)
  Receive Date: 20100507
  Receipt Date: 20100426
  Transmission Date: 20101027
  Serious: Yes (Hospitalization, Other)
  Sender: FDA-Public Use
  Company Number: PHHY2010US26821

PATIENT
  Sex: Male
  Weight: 82.086 kg

DRUGS (13)
  1. EXJADE [Suspect]
     Indication: IRON OVERLOAD
     Dosage: 1000 MG, QD
     Route: 048
     Dates: start: 20090828
  2. PRILOSEC [Concomitant]
     Dosage: UNK
  3. MIRTAZAPINE [Concomitant]
     Dosage: UNK
  4. LANTUS [Concomitant]
     Dosage: UNK
  5. DARVOCET [Concomitant]
     Dosage: UNK
  6. PROCRIT [Concomitant]
     Dosage: UNK
  7. MULTI-VITAMINS [Concomitant]
     Dosage: UNK
  8. MEGACE [Concomitant]
     Dosage: UNK
  9. METOCLOPRAMIDE HYDROCHLORIDE [Concomitant]
     Dosage: UNK
  10. GLIMEPIRIDE [Concomitant]
     Dosage: UNK
  11. COLACE [Concomitant]
     Dosage: UNK
  12. ARANESP [Concomitant]
     Indication: MYELODYSPLASTIC SYNDROME
     Dosage: 200 MCG; 14 DAYS
     Route: 058
     Dates: start: 20090924
  13. ARANESP [Concomitant]
     Indication: ANAEMIA

REACTIONS (7)
  - BLADDER DISORDER [None]
  - CHOLECYSTECTOMY [None]
  - COLON INJURY [None]
  - CONDITION AGGRAVATED [None]
  - EAR INFECTION [None]
  - HAEMORRHAGE [None]
  - RECTAL HAEMORRHAGE [None]
